FAERS Safety Report 9388925 (Version 1)
Quarter: 2013Q3

REPORT INFORMATION
  Report Type: Report from Study
  Country: DE (occurrence: DE)
  Receive Date: 20130708
  Receipt Date: 20130708
  Transmission Date: 20140515
  Serious: Yes (Hospitalization)
  Sender: FDA-Public Use
  Company Number: DE-ABBOTT-13P-062-1113887-00

PATIENT
  Age: 72 Year
  Sex: Female
  Weight: 72 kg

DRUGS (18)
  1. ZEMPLAR [Suspect]
     Indication: HYPERPARATHYROIDISM SECONDARY
     Dates: start: 2011
  2. MARCUMAR [Suspect]
     Indication: THROMBOSIS PROPHYLAXIS
     Dates: end: 20130121
  3. CAPEZITABIN/AVASTIN [Concomitant]
     Indication: RECTAL CANCER
  4. COAPROVEL [Concomitant]
     Indication: PRODUCT USED FOR UNKNOWN INDICATION
     Dosage: 150/12.5 MG DAILY
  5. BISOPROLOL [Concomitant]
     Indication: PRODUCT USED FOR UNKNOWN INDICATION
  6. TOREM [Concomitant]
     Indication: PRODUCT USED FOR UNKNOWN INDICATION
     Dates: end: 201301
  7. TOREM [Concomitant]
     Dates: start: 201301
  8. SIMVASTATIN [Concomitant]
     Indication: PRODUCT USED FOR UNKNOWN INDICATION
  9. PANTOZOL [Concomitant]
     Indication: PRODUCT USED FOR UNKNOWN INDICATION
  10. NOVALGIN [Concomitant]
     Indication: PRODUCT USED FOR UNKNOWN INDICATION
  11. ASA [Concomitant]
     Indication: PRODUCT USED FOR UNKNOWN INDICATION
  12. REMERGIL [Concomitant]
     Indication: PRODUCT USED FOR UNKNOWN INDICATION
  13. CALCET [Concomitant]
     Indication: PRODUCT USED FOR UNKNOWN INDICATION
  14. XELODA [Concomitant]
     Indication: PRODUCT USED FOR UNKNOWN INDICATION
  15. LAXOBERAL [Concomitant]
     Indication: PRODUCT USED FOR UNKNOWN INDICATION
  16. DILTIAZEM [Concomitant]
     Indication: PRODUCT USED FOR UNKNOWN INDICATION
     Dates: start: 201301, end: 201302
  17. PROTAPHANE [Concomitant]
     Indication: PRODUCT USED FOR UNKNOWN INDICATION
  18. ACTRAPID [Concomitant]
     Indication: PRODUCT USED FOR UNKNOWN INDICATION

REACTIONS (3)
  - Anal haemorrhage [Recovered/Resolved]
  - Anal fissure [Recovered/Resolved]
  - Constipation [Recovering/Resolving]
